FAERS Safety Report 9422816 (Version 1)
Quarter: 2013Q3

REPORT INFORMATION
  Report Type: Spontaneous
  Country: US (occurrence: US)
  Receive Date: 20130726
  Receipt Date: 20130726
  Transmission Date: 20140515
  Serious: Yes (Other)
  Sender: FDA-Public Use
  Company Number: PHEH2013US015644

PATIENT
  Sex: Male

DRUGS (11)
  1. DIOVAN [Suspect]
     Dosage: 160 MG, BID(TWICE DAILY)
  2. CARVEDILOL [Concomitant]
     Dosage: UNK UKN, UNK
  3. SPIRONOLACTONE [Concomitant]
     Dosage: 25 MG, QD
  4. AMLODIPINE BESYLATE [Concomitant]
     Dosage: 5 MG, QD
  5. HYDRALAZINE [Concomitant]
     Dosage: 25 MG, TID
  6. PRAVASTATIN [Concomitant]
     Dosage: UNK UKN, UNK
  7. WARFARIN [Concomitant]
     Dosage: 7.5 MG, QW
  8. DIGOXIN [Concomitant]
     Dosage: 125 MG, QD
  9. OMEPRAZOLE [Concomitant]
     Dosage: 40 MG, QD
  10. ISOSORBIDE [Concomitant]
     Dosage: 60 MG, QD
  11. ASPIRIN [Concomitant]
     Dosage: UNK UKN, QD

REACTIONS (1)
  - Cardiac failure [Unknown]
